FAERS Safety Report 6183623-1 (Version None)
Quarter: 2009Q2

REPORT INFORMATION
  Report Type: 
  Country: None (occurrence: None)
  Receive Date: 20090508
  Receipt Date: 20090506
  Transmission Date: 20091009
  Serious: Yes (Other)
  Sender: FDA-Public Use
  Company Number: US-JNJFOC-20081204774

PATIENT
  Sex: Male

DRUGS (2)
  1. LEUSTATIN [Suspect]
     Indication: HAIRY CELL LEUKAEMIA
     Route: 042
  2. ALLOPURINOL [Concomitant]

REACTIONS (2)
  - HERPES ZOSTER DISSEMINATED [None]
  - RASH MACULAR [None]
